FAERS Safety Report 8406461-5 (Version None)
Quarter: 2012Q2

REPORT INFORMATION
  Report Type: 
  Country: None (occurrence: None)
  Receive Date: 20120604
  Receipt Date: 20120529
  Transmission Date: 20120825
  Serious: Yes (Death, Hospitalization, Other)
  Sender: FDA-Public Use
  Company Number: JP-JNJFOC-20120600373

PATIENT
  Age: 87 Year
  Sex: Male

DRUGS (2)
  1. KETOPROFEN [Concomitant]
     Route: 062
  2. TRAMADOL HYDROCHLORIDE AND ACETAMINOPHEN [Suspect]
     Indication: BACK PAIN
     Dosage: 3 DF X 1 PER 1 DAY
     Route: 048
     Dates: start: 20120407

REACTIONS (4)
  - GAIT DISTURBANCE [None]
  - DIZZINESS [None]
  - DEPRESSED LEVEL OF CONSCIOUSNESS [None]
  - PNEUMONIA [None]
